FAERS Safety Report 23298478 (Version 3)
Quarter: 2024Q3

REPORT INFORMATION
  Report Type: Report from Study
  Country: US (occurrence: US)
  Receive Date: 20231214
  Receipt Date: 20240710
  Transmission Date: 20241016
  Serious: Yes (Hospitalization, Other)
  Sender: ABBVIE
  Company Number: US-ABBVIE-5532766

PATIENT
  Sex: Male

DRUGS (1)
  1. IMBRUVICA [Suspect]
     Active Substance: IBRUTINIB
     Indication: Chronic lymphocytic leukaemia
     Dosage: FORM STRENGTH: 430 MILLIGRAM
     Route: 048
     Dates: start: 20210623

REACTIONS (7)
  - Hernia [Recovered/Resolved]
  - Spinal operation [Unknown]
  - Abdominal pain [Recovered/Resolved]
  - Gait disturbance [Unknown]
  - Myalgia [Unknown]
  - Back pain [Unknown]
  - Spinal disorder [Unknown]

NARRATIVE: CASE EVENT DATE: 20230101
